FAERS Safety Report 10693174 (Version 4)
Quarter: 2015Q3

REPORT INFORMATION
  Report Type: Spontaneous
  Country: FR (occurrence: FR)
  Receive Date: 20150106
  Receipt Date: 20150806
  Transmission Date: 20151125
  Serious: Yes (Hospitalization, Other)
  Sender: FDA-Public Use
  Company Number: FR-GILEAD-2014-0127084

PATIENT
  Age: 89 Year
  Sex: Female
  Weight: 64 kg

DRUGS (7)
  1. OFLOCET                            /00731801/ [Concomitant]
     Active Substance: OFLOXACIN
     Indication: LUNG DISORDER
     Dosage: 200 MG, BID
     Dates: start: 20141127, end: 20141216
  2. ROCEPHINE [Concomitant]
     Active Substance: CEFTRIAXONE SODIUM
     Indication: LUNG DISORDER
     Dosage: 2 G, QD
     Route: 042
     Dates: start: 20141127, end: 20141216
  3. BISOCE [Concomitant]
     Active Substance: BISOPROLOL
     Dosage: UNK
  4. IDELALISIB [Suspect]
     Active Substance: IDELALISIB
     Indication: NON-HODGKIN^S LYMPHOMA
     Dosage: 150 MG, BID
     Route: 048
     Dates: start: 20140911, end: 20141220
  5. SOLUPRED                           /00016201/ [Concomitant]
     Active Substance: PREDNISOLONE
     Dosage: UNK
     Dates: start: 20141222, end: 20150113
  6. IDELALISIB [Suspect]
     Active Substance: IDELALISIB
     Indication: LYMPHOMA
     Dosage: 100 MG, BID
     Route: 048
     Dates: start: 201501
  7. SOLUPRED                           /00016201/ [Concomitant]
     Active Substance: PREDNISOLONE
     Indication: LUNG DISORDER
     Dosage: 100 MG, QD
     Route: 048
     Dates: start: 20041127, end: 20141230

REACTIONS (5)
  - Pyrexia [Unknown]
  - Hypoxia [Recovered/Resolved]
  - Off label use [Unknown]
  - Interstitial lung disease [Recovered/Resolved]
  - Dyspnoea [Unknown]

NARRATIVE: CASE EVENT DATE: 20141220
